FAERS Safety Report 26217952 (Version 1)
Quarter: 2025Q4

REPORT INFORMATION
  Report Type: Spontaneous
  Country: IN (occurrence: IN)
  Receive Date: 20251231
  Receipt Date: 20251231
  Transmission Date: 20260118
  Serious: Yes (Other)
  Sender: MYLAN
  Company Number: IN-MYLANLABS-2025M1111781

PATIENT
  Age: 49 Year
  Sex: Female

DRUGS (24)
  1. PACLITAXEL [Suspect]
     Active Substance: PACLITAXEL
     Indication: Serous cystadenocarcinoma ovary
     Dosage: 175 MILLIGRAM/SQ. METER, CYCLE ((ADMINISTERED OVER SIX CYCLES)
     Dates: end: 20241111
  2. PACLITAXEL [Suspect]
     Active Substance: PACLITAXEL
     Dosage: 175 MILLIGRAM/SQ. METER, CYCLE ((ADMINISTERED OVER SIX CYCLES)
     Route: 065
     Dates: end: 20241111
  3. PACLITAXEL [Suspect]
     Active Substance: PACLITAXEL
     Dosage: 175 MILLIGRAM/SQ. METER, CYCLE ((ADMINISTERED OVER SIX CYCLES)
     Route: 065
     Dates: end: 20241111
  4. PACLITAXEL [Suspect]
     Active Substance: PACLITAXEL
     Dosage: 175 MILLIGRAM/SQ. METER, CYCLE ((ADMINISTERED OVER SIX CYCLES)
     Dates: end: 20241111
  5. CARBOPLATIN [Suspect]
     Active Substance: CARBOPLATIN
     Indication: Serous cystadenocarcinoma ovary
     Dosage: UNK, CYCLE {AUC 5; ADMINISTERED OVER SIX CYCLES}
     Dates: end: 20241111
  6. CARBOPLATIN [Suspect]
     Active Substance: CARBOPLATIN
     Dosage: UNK, CYCLE {AUC 5; ADMINISTERED OVER SIX CYCLES}
     Route: 065
     Dates: end: 20241111
  7. CARBOPLATIN [Suspect]
     Active Substance: CARBOPLATIN
     Dosage: UNK, CYCLE {AUC 5; ADMINISTERED OVER SIX CYCLES}
     Route: 065
     Dates: end: 20241111
  8. CARBOPLATIN [Suspect]
     Active Substance: CARBOPLATIN
     Dosage: UNK, CYCLE {AUC 5; ADMINISTERED OVER SIX CYCLES}
     Dates: end: 20241111
  9. GEMCITABINE [Suspect]
     Active Substance: GEMCITABINE
     Indication: Serous cystadenocarcinoma ovary
     Dosage: 1000 MILLIGRAM/SQ. METER, CYCLE (3 CYCLE)
     Dates: end: 20250401
  10. GEMCITABINE [Suspect]
     Active Substance: GEMCITABINE
     Dosage: 1000 MILLIGRAM/SQ. METER, CYCLE (3 CYCLE)
     Route: 065
     Dates: end: 20250401
  11. GEMCITABINE [Suspect]
     Active Substance: GEMCITABINE
     Dosage: 1000 MILLIGRAM/SQ. METER, CYCLE (3 CYCLE)
     Route: 065
     Dates: end: 20250401
  12. GEMCITABINE [Suspect]
     Active Substance: GEMCITABINE
     Dosage: 1000 MILLIGRAM/SQ. METER, CYCLE (3 CYCLE)
     Dates: end: 20250401
  13. DOXORUBICIN [Suspect]
     Active Substance: DOXORUBICIN
     Indication: Serous cystadenocarcinoma ovary
     Dosage: 30 MILLIGRAM/SQ. METER, CYCLE (FOR THREE CYCLES)
     Dates: end: 20250401
  14. DOXORUBICIN [Suspect]
     Active Substance: DOXORUBICIN
     Dosage: 30 MILLIGRAM/SQ. METER, CYCLE (FOR THREE CYCLES)
     Route: 065
     Dates: end: 20250401
  15. DOXORUBICIN [Suspect]
     Active Substance: DOXORUBICIN
     Dosage: 30 MILLIGRAM/SQ. METER, CYCLE (FOR THREE CYCLES)
     Route: 065
     Dates: end: 20250401
  16. DOXORUBICIN [Suspect]
     Active Substance: DOXORUBICIN
     Dosage: 30 MILLIGRAM/SQ. METER, CYCLE (FOR THREE CYCLES)
     Dates: end: 20250401
  17. ETOPOSIDE [Suspect]
     Active Substance: ETOPOSIDE
     Indication: Serous cystadenocarcinoma ovary
     Dosage: 100 MILLIGRAM/SQ. METER, CYCLE (THREE CYCLES)
     Dates: end: 20250809
  18. ETOPOSIDE [Suspect]
     Active Substance: ETOPOSIDE
     Dosage: 100 MILLIGRAM/SQ. METER, CYCLE (THREE CYCLES)
     Route: 065
     Dates: end: 20250809
  19. ETOPOSIDE [Suspect]
     Active Substance: ETOPOSIDE
     Dosage: 100 MILLIGRAM/SQ. METER, CYCLE (THREE CYCLES)
     Route: 065
     Dates: end: 20250809
  20. ETOPOSIDE [Suspect]
     Active Substance: ETOPOSIDE
     Dosage: 100 MILLIGRAM/SQ. METER, CYCLE (THREE CYCLES)
     Dates: end: 20250809
  21. CYCLOPHOSPHAMIDE [Suspect]
     Active Substance: CYCLOPHOSPHAMIDE
     Indication: Serous cystadenocarcinoma ovary
     Dosage: 600 MILLIGRAM/SQ. METER, CYCLE (THREE CYCLE)
     Dates: end: 20250809
  22. CYCLOPHOSPHAMIDE [Suspect]
     Active Substance: CYCLOPHOSPHAMIDE
     Dosage: 600 MILLIGRAM/SQ. METER, CYCLE (THREE CYCLE)
     Route: 065
     Dates: end: 20250809
  23. CYCLOPHOSPHAMIDE [Suspect]
     Active Substance: CYCLOPHOSPHAMIDE
     Dosage: 600 MILLIGRAM/SQ. METER, CYCLE (THREE CYCLE)
     Route: 065
     Dates: end: 20250809
  24. CYCLOPHOSPHAMIDE [Suspect]
     Active Substance: CYCLOPHOSPHAMIDE
     Dosage: 600 MILLIGRAM/SQ. METER, CYCLE (THREE CYCLE)
     Dates: end: 20250809

REACTIONS (2)
  - Drug ineffective [Unknown]
  - Disease progression [Unknown]
